FAERS Safety Report 9844935 (Version 1)
Quarter: 2014Q1

REPORT INFORMATION
  Report Type: Spontaneous
  Country: US (occurrence: None)
  Receive Date: 20140123
  Receipt Date: 20140123
  Transmission Date: 20141002
  Serious: Yes (Life-Threatening, Other)
  Sender: FDA-Public Use
  Company Number: None

PATIENT
  Age: 58 Year
  Sex: Male
  Weight: 77.11 kg

DRUGS (1)
  1. AMBIEN [Suspect]
     Indication: INSOMNIA
     Route: 048
     Dates: start: 20111117, end: 20111124

REACTIONS (14)
  - Somnambulism [None]
  - Road traffic accident [None]
  - Laceration [None]
  - Swelling face [None]
  - Facial pain [None]
  - Excoriation [None]
  - Haemorrhage [None]
  - Confusional state [None]
  - Contusion [None]
  - Loss of consciousness [None]
  - Tenderness [None]
  - Asthenia [None]
  - Somnambulism [None]
  - Craniocerebral injury [None]
